FAERS Safety Report 6616792-7 (Version None)
Quarter: 2010Q1

REPORT INFORMATION
  Report Type: 
  Country: None (occurrence: None)
  Receive Date: 20100301
  Receipt Date: 20100216
  Transmission Date: 20100710
  Serious: Yes (Death, Life-Threatening, Hospitalization)
  Sender: FDA-Public Use
  Company Number: CLOF-1000732

PATIENT
  Age: 59 Year
  Sex: Female
  Weight: 86 kg

DRUGS (25)
  1. CLOFARABINE OR PLACEBO (CODE NOT BROKEN) [Suspect]
     Indication: ACUTE MYELOID LEUKAEMIA
     Dosage: BLINDED, INFORMATION WITHHELD
     Dates: start: 20090928, end: 20091003
  2. ARA-C (CYTARABINE) SOLUTION FOR INFUSION, G/M2 [Suspect]
     Indication: ACUTE MYELOID LEUKAEMIA
     Dosage: 1700 MG, QDX5, NASAL
     Route: 045
     Dates: start: 20090930, end: 20091004
  3. ALLOPURINOL [Concomitant]
  4. ALTEPLASE (ALTEPLASE) [Concomitant]
  5. CIPROFLOXACIN [Concomitant]
  6. DEXAMETHASONE TAB [Concomitant]
  7. DIPHENHYDRAMINE HCL [Concomitant]
  8. DROPERIDOL [Concomitant]
  9. FAMOTIDINE [Concomitant]
  10. FLUCONAZOLE [Concomitant]
  11. FUROSEMIDE [Concomitant]
  12. HYDROMORPHONE HCL [Concomitant]
  13. LANSOPRAZOLE [Concomitant]
  14. LOPERAMIDE (LOPERAMIDE) [Concomitant]
  15. MAGNESIUM HYDROXIDE TAB [Concomitant]
  16. NICOTINE [Concomitant]
  17. ONDANSETRON [Concomitant]
  18. POSACONAZOLE [Concomitant]
  19. POTASSIUM CHLORIDE [Concomitant]
  20. PREDNISOLONE [Concomitant]
  21. PROCHLORPERAZINE MALEATE [Concomitant]
  22. HYOSCINE HBR HYT [Concomitant]
  23. BACTRIM [Concomitant]
  24. VALACYCLOVIR [Concomitant]
  25. VENLAFAXINE HCL [Concomitant]

REACTIONS (20)
  - ALPHA HAEMOLYTIC STREPTOCOCCAL INFECTION [None]
  - ATELECTASIS [None]
  - BONE MARROW FAILURE [None]
  - BRONCHOALVEOLAR LAVAGE ABNORMAL [None]
  - CLOSTRIDIUM DIFFICILE COLITIS [None]
  - COAGULOPATHY [None]
  - DELIRIUM [None]
  - GENERALISED OEDEMA [None]
  - HYPERNATRAEMIA [None]
  - HYPOTENSION [None]
  - MENTAL STATUS CHANGES [None]
  - MYELOFIBROSIS [None]
  - PNEUMONIA [None]
  - PULMONARY OEDEMA [None]
  - RESPIRATORY FAILURE [None]
  - SEPTIC SHOCK [None]
  - SPUTUM CULTURE POSITIVE [None]
  - STENOTROPHOMONAS INFECTION [None]
  - TACHYCARDIA [None]
  - VIRAL INFECTION [None]
